FAERS Safety Report 4861428-9 (Version None)
Quarter: 2005Q4

REPORT INFORMATION
  Report Type: 
  Country: None (occurrence: None)
  Receive Date: 20051129
  Receipt Date: 20041105
  Transmission Date: 20060501
  Serious: Yes (Disabling)
  Sender: FDA-Public Use
  Company Number: WAES 0411USA00401

PATIENT
  Age: 45 Year
  Sex: Male

DRUGS (4)
  1. FOSAMAX [Suspect]
     Indication: OSTEOPOROSIS
     Dosage: 70 MG 1 X PO
     Route: 048
     Dates: start: 20041012, end: 20041012
  2. AUGMENTIN '125' [Concomitant]
  3. CIPRO [Concomitant]
  4. ZITHROMAX [Concomitant]

REACTIONS (2)
  - ARTHRALGIA [None]
  - INFLUENZA LIKE ILLNESS [None]
